FAERS Safety Report 18296726 (Version 2)
Quarter: 2020Q4

REPORT INFORMATION
  Report Type: Spontaneous
  Country: JP (occurrence: JP)
  Receive Date: 20200922
  Receipt Date: 20201008
  Transmission Date: 20210113
  Serious: Yes (Other)
  Sender: FDA-Public Use
  Company Number: JP-PFIZER INC-2020362242

PATIENT
  Age: 5 Decade
  Sex: Male

DRUGS (2)
  1. EFFEXOR [Suspect]
     Active Substance: VENLAFAXINE HYDROCHLORIDE
     Dosage: 150 MG
     Route: 048
  2. LYRICA [Suspect]
     Active Substance: PREGABALIN
     Dosage: 300 MG
     Route: 048

REACTIONS (2)
  - Liver function test abnormal [Unknown]
  - Blood creatine phosphokinase increased [Recovered/Resolved]
